FAERS Safety Report 20731259 (Version 1)
Quarter: 2022Q2

REPORT INFORMATION
  Report Type: Spontaneous
  Country: CN (occurrence: CN)
  Receive Date: 20220420
  Receipt Date: 20220420
  Transmission Date: 20220721
  Serious: Yes (Hospitalization)
  Sender: FDA-Public Use
  Company Number: CN-FRESENIUS KABI-FK202204456

PATIENT
  Age: 55 Year
  Sex: Male
  Weight: 75 kg

DRUGS (8)
  1. EGG PHOSPHOLIPIDS\GLYCERIN\MEDIUM-CHAIN TRIGLYCERIDES\SOYBEAN OIL [Suspect]
     Active Substance: EGG PHOSPHOLIPIDS\GLYCERIN\MEDIUM-CHAIN TRIGLYCERIDES\SOYBEAN OIL
     Indication: Nutritional supplementation
     Dosage: EMULSION FOR INFUSION, BUT THE FORM OF ADMIN IS INJECTION PER SOURCE.
     Route: 041
     Dates: start: 20220322, end: 20220328
  2. AZITHROMYCIN [Suspect]
     Active Substance: AZITHROMYCIN
     Indication: Immune enhancement therapy
     Dosage: CAPSULE
     Route: 045
     Dates: start: 20220325, end: 20220331
  3. MEROPENEM [Suspect]
     Active Substance: MEROPENEM
     Indication: Anti-infective therapy
     Dosage: POWDER INJECTION, PUMP INJECTION
     Route: 065
     Dates: start: 20220325, end: 20220330
  4. SODIUM CHLORIDE [Concomitant]
     Active Substance: SODIUM CHLORIDE
     Indication: Vehicle solution use
     Dosage: INJECTION; PUMP INJECTION
     Route: 065
     Dates: start: 20220325, end: 20220330
  5. PIPERACILLIN SODIUM\TAZOBACTAM SODIUM [Concomitant]
     Active Substance: PIPERACILLIN SODIUM\TAZOBACTAM SODIUM
     Indication: Anti-infective therapy
     Dosage: POWDER INJECTION; PUMP INJECTION
     Route: 065
     Dates: start: 20220324, end: 20220325
  6. DEXTROSE [Concomitant]
     Active Substance: DEXTROSE
     Indication: Vehicle solution use
     Dosage: INJECTION, PUMP INJECTION
     Route: 065
     Dates: start: 20220324, end: 20220325
  7. COPPER CHLORIDE/ZINC CHLORIDE/MANGANESE CHLORIDE/CHROMIC CHLORIDE [Concomitant]
     Indication: Nutritional supplementation
     Dosage: INJECTION
     Route: 041
     Dates: start: 20220321, end: 20220325
  8. SODIUM CHLORIDE [Concomitant]
     Active Substance: SODIUM CHLORIDE
     Indication: Vehicle solution use
     Dosage: INJECTION
     Route: 041
     Dates: start: 20220321, end: 20220325

REACTIONS (1)
  - Liver injury [Recovering/Resolving]

NARRATIVE: CASE EVENT DATE: 20220328
